FAERS Safety Report 7905823-X (Version None)
Quarter: 2011Q4

REPORT INFORMATION
  Report Type: 
  Country: None (occurrence: None)
  Receive Date: 20111108
  Receipt Date: 20111021
  Transmission Date: 20120403
  Serious: No
  Sender: FDA-Public Use
  Company Number: C-11-036

PATIENT
  Age: 68 Year
  Sex: Female
  Weight: 70.7611 kg

DRUGS (1)
  1. PHENDIMETRAZINE TARTRATE [Suspect]
     Indication: APPETITE DISORDER
     Dosage: 35MG-BID-ORAL
     Route: 048
     Dates: start: 20110901, end: 20111001

REACTIONS (3)
  - PARAESTHESIA [None]
  - HYPOAESTHESIA [None]
  - PRURITUS [None]
